FAERS Safety Report 25247043 (Version 3)
Quarter: 2025Q3

REPORT INFORMATION
  Report Type: Other
  Country: US (occurrence: US)
  Receive Date: 20250428
  Receipt Date: 20250706
  Transmission Date: 20251021
  Serious: No
  Sender: TRAVERE THERAPEUTICS
  Company Number: US-TRAVERE-2025TVT00348

PATIENT
  Age: 55 Year
  Sex: Male

DRUGS (3)
  1. FILSPARI [Suspect]
     Active Substance: SPARSENTAN
     Indication: IgA nephropathy
     Route: 048
     Dates: start: 20241121
  2. FILSPARI [Suspect]
     Active Substance: SPARSENTAN
     Dosage: 2 TABLETS OF 200MG
     Route: 048
     Dates: start: 20250304
  3. TARPEYO [Concomitant]
     Active Substance: BUDESONIDE

REACTIONS (5)
  - Swelling [Recovering/Resolving]
  - Fluid retention [None]
  - Arthritis [Unknown]
  - Arthralgia [Unknown]
  - Liver function test increased [None]

NARRATIVE: CASE EVENT DATE: 20250304
